FAERS Safety Report 4646058-6 (Version None)
Quarter: 2005Q2

REPORT INFORMATION
  Report Type: 
  Country: None (occurrence: None)
  Receive Date: 20050425
  Receipt Date: 20050418
  Transmission Date: 20051028
  Serious: Yes (Other)
  Sender: FDA-Public Use
  Company Number: 2005056490

PATIENT
  Age: 67 Year
  Sex: Female
  Weight: 81.6475 kg

DRUGS (8)
  1. NORVASC [Suspect]
     Indication: BLOOD PRESSURE
     Dosage: 5 MG (5 MG, 1 IN 1 D), ORAL
     Route: 048
  2. LIPITOR [Suspect]
     Indication: BLOOD CHOLESTEROL
     Dosage: 20 MG (20 MG, 1 IN 1 D), ORAL
     Route: 048
  3. CADUET [Suspect]
     Indication: BLOOD CHOLESTEROL
     Dosage: 10 MG/20 (1 IN 1 D), ORAL
     Route: 048
     Dates: start: 20050301
  4. CADUET [Suspect]
     Indication: BLOOD PRESSURE
     Dosage: 10 MG/20 (1 IN 1 D), ORAL
     Route: 048
     Dates: start: 20050301
  5. VALSARTAN [Concomitant]
  6. ACETYL SALICYLIC ACID USP BAT [Concomitant]
  7. VENLAFAXINE HCL [Concomitant]
  8. NITROGLYCERIN [Concomitant]

REACTIONS (15)
  - ARTHRALGIA [None]
  - BLOOD PRESSURE INADEQUATELY CONTROLLED [None]
  - DIFFICULTY IN WALKING [None]
  - FAILURE OF IMPLANT [None]
  - HAEMORRHAGE [None]
  - HYPOKINESIA [None]
  - IATROGENIC INJURY [None]
  - JOINT SWELLING [None]
  - OEDEMA PERIPHERAL [None]
  - PHARMACEUTICAL PRODUCT COMPLAINT [None]
  - RENAL ARTERY OCCLUSION [None]
  - RENAL INJURY [None]
  - RENAL NECROSIS [None]
  - SURGICAL PROCEDURE REPEATED [None]
  - VASCULAR PROCEDURE COMPLICATION [None]
